FAERS Safety Report 8315982 (Version 4)
Quarter: 2021Q2

REPORT INFORMATION
  Report Type: Report from Study
  Country: CA (occurrence: CA)
  Receive Date: 20111229
  Receipt Date: 20210522
  Transmission Date: 20210717
  Serious: Yes (Hospitalization, Other)
  Sender: FDA-Public Use
  Company Number: CA-SHIRE-ALL1-2011-05070

PATIENT
  Age: 14 Year
  Sex: Male
  Weight: 30.5 kg

DRUGS (28)
  1. METHYLPREDNISOLONE. [Concomitant]
     Active Substance: METHYLPREDNISOLONE
     Dosage: 30 MG, AS REQ^D
     Route: 041
     Dates: start: 20081008, end: 20081126
  2. SALBUTAMOL [Concomitant]
     Active Substance: ALBUTEROL
     Dosage: 1 PUFF, AS REQ^D
     Route: 055
     Dates: start: 2005
  3. MELATONIN [Concomitant]
     Active Substance: MELATONIN
     Dosage: 6 MG, 1X/DAY:QD
     Route: 051
  4. FLUTICASONE. [Concomitant]
     Active Substance: FLUTICASONE
     Dosage: 125 ?G, 2X/DAY:BID
     Route: 055
     Dates: start: 2005, end: 2007
  5. OTHER THERAPEUTIC PRODUCTS [Concomitant]
     Active Substance: UNSPECIFIED INGREDIENT
     Indication: GASTROINTESTINAL DISORDER
     Dosage: 20 MILLIGRAM, TID
     Route: 051
  6. ACETAMINOPHEN. [Concomitant]
     Active Substance: ACETAMINOPHEN
     Indication: PREMEDICATION
  7. MELATONIN [Concomitant]
     Active Substance: MELATONIN
     Indication: SLEEP DISORDER
     Dosage: 2.0 MG, 1X/DAY:QD
     Route: 048
     Dates: start: 200803
  8. FLUTICASONE. [Concomitant]
     Active Substance: FLUTICASONE
     Indication: RESPIRATORY DISORDER
     Dosage: 50 ?G, 2X/DAY:BID
     Route: 055
     Dates: start: 2007
  9. CHOLECALCIFEROL [Concomitant]
     Active Substance: CHOLECALCIFEROL
     Indication: VITAMIN SUPPLEMENTATION
     Dosage: 400 MG, 1X/DAY:QD
     Route: 051
  10. IDURSULFASE [Suspect]
     Active Substance: IDURSULFASE
     Dosage: 12 MILLIGRAM, 1X/WEEK
     Route: 041
     Dates: start: 20080813
  11. PARACETAMOL [Concomitant]
     Active Substance: ACETAMINOPHEN
     Dosage: 450 MG, AS REQ^D
     Route: 048
     Dates: start: 20080813, end: 20080911
  12. CARBAMAZEPINE. [Concomitant]
     Active Substance: CARBAMAZEPINE
     Indication: NERVOUS SYSTEM DISORDER
     Dosage: 140 MG , 2X/DAY:BID
     Route: 048
     Dates: start: 20070514
  13. RANITIDINE. [Concomitant]
     Active Substance: RANITIDINE
     Indication: GASTROINTESTINAL DISORDER
     Dosage: 30 MG, 1X/DAY:QD
     Route: 048
     Dates: start: 2006
  14. OTHER THERAPEUTIC PRODUCTS [Concomitant]
     Active Substance: UNSPECIFIED INGREDIENT
     Indication: PREMEDICATION
     Dosage: 5 ML, UNKNOWN
     Route: 055
  15. GABAPENTIN. [Concomitant]
     Active Substance: GABAPENTIN
     Indication: PAIN
     Dosage: 300 MG, 1X/DAY:QD
     Route: 051
  16. IDURSULFASE [Suspect]
     Active Substance: IDURSULFASE
     Dosage: 14.3 MILLIGRAM, 1X/WEEK
     Route: 041
  17. IDURSULFASE [Suspect]
     Active Substance: IDURSULFASE
     Dosage: 0.5 MILLIGRAM/KILOGRAM, 1X/WEEK
     Route: 041
     Dates: start: 20080813, end: 20090909
  18. CLONAZEPAM. [Concomitant]
     Active Substance: CLONAZEPAM
     Indication: SLEEP DISORDER
     Dosage: 0.2 MG, 1X/DAY:QD
     Route: 051
  19. IDURSULFASE [Suspect]
     Active Substance: IDURSULFASE
     Dosage: 0.5 MILLIGRAM/KILOGRAM, 1X/WEEK
     Route: 041
     Dates: start: 20090914
  20. METHYLPREDNISOLONE. [Concomitant]
     Active Substance: METHYLPREDNISOLONE
     Indication: PREMEDICATION
     Dosage: 40 MG, AS REQ^D
     Route: 042
     Dates: start: 20081126
  21. IDURSULFASE [Suspect]
     Active Substance: IDURSULFASE
     Indication: MUCOPOLYSACCHARIDOSIS II
     Dosage: 18 MILLIGRAM, 1X/WEEK (3 9.0 VIALS)
     Route: 041
  22. PARACETAMOL [Concomitant]
     Active Substance: ACETAMINOPHEN
     Indication: PREMEDICATION
     Dosage: 350 MG, AS REQ^D
     Route: 048
     Dates: start: 20080822
  23. LACTULOSE. [Concomitant]
     Active Substance: LACTULOSE
     Indication: SUPPLEMENTATION THERAPY
     Dosage: 10 ML, 2X/DAY:BID
     Route: 051
  24. IDURSULFASE [Suspect]
     Active Substance: IDURSULFASE
     Dosage: 0.5 MILLIGRAM/KILOGRAM, 1/WEEK
     Route: 042
     Dates: start: 20100726
  25. ATROVENT [Concomitant]
     Active Substance: IPRATROPIUM BROMIDE
     Indication: NASAL CONGESTION
     Dosage: 0.03 DF, OTHER (2?3 TIMES DAILY)
     Route: 045
     Dates: start: 20110611
  26. DIPHENHYDRAMINE. [Concomitant]
     Active Substance: DIPHENHYDRAMINE
     Indication: PREMEDICATION
     Dosage: 37.5 MG, AS REQ^D
     Route: 065
     Dates: start: 20081001
  27. BUDESONIDE. [Concomitant]
     Active Substance: BUDESONIDE
     Indication: RESPIRATORY DISORDER
     Dosage: 1.0 MG, 2X/DAY:BID
     Route: 055
     Dates: start: 2008
  28. SALBUTAMOL [Concomitant]
     Active Substance: ALBUTEROL
     Indication: PREMEDICATION
     Dosage: 0.9 ML, AS REQ^D
     Route: 055
     Dates: start: 20080813

REACTIONS (4)
  - Insomnia [Recovered/Resolved]
  - Behaviour disorder [Recovered/Resolved]
  - Agitation [Recovered/Resolved]
  - Restlessness [Recovered/Resolved]

NARRATIVE: CASE EVENT DATE: 20100908
